FAERS Safety Report 8114691-5 (Version None)
Quarter: 2012Q1

REPORT INFORMATION
  Report Type: 
  Country: None (occurrence: None)
  Receive Date: 20120202
  Receipt Date: 20120202
  Transmission Date: 20120608
  Serious: Yes (Hospitalization)
  Sender: FDA-Public Use
  Company Number: None

PATIENT
  Age: 58 Year
  Sex: Male
  Weight: 91.6 kg

DRUGS (2)
  1. IBUPROFEN [Suspect]
     Indication: PAIN
     Dosage: 400 MG PRN PO
     Route: 048
     Dates: start: 20110915, end: 20111003
  2. ASPIRIN [Suspect]
     Dosage: 81 MG EVERY DAY PO
     Route: 048
     Dates: start: 20070720

REACTIONS (5)
  - GASTRIC HAEMORRHAGE [None]
  - ERUCTATION [None]
  - FATIGUE [None]
  - MELAENA [None]
  - SELF-MEDICATION [None]
